FAERS Safety Report 16668015 (Version 1)
Quarter: 2019Q3

REPORT INFORMATION
  Report Type: Spontaneous
  Country: US (occurrence: US)
  Receive Date: 20190619
  Receipt Date: 20190619
  Transmission Date: 20191004
  Serious: Yes (Life-Threatening, Hospitalization, Disabling, Other)
  Sender: FDA-Public Use
  Company Number: None

PATIENT
  Age: 54 Year
  Sex: Female
  Weight: 125.19 kg

DRUGS (12)
  1. COLY-MYCIN [Concomitant]
  2. JARDIANCE [Suspect]
     Active Substance: EMPAGLIFLOZIN
     Indication: TYPE 2 DIABETES MELLITUS
     Dosage: ?          QUANTITY:1 UNK - UNKNOWN;?
     Route: 048
     Dates: start: 20180110, end: 20190429
  3. OMEPRAZOLE DR [Concomitant]
     Active Substance: OMEPRAZOLE
  4. SPIRONOLACTONE. [Concomitant]
     Active Substance: SPIRONOLACTONE
  5. METFORMIN HYDROCHLORIDE. [Concomitant]
     Active Substance: METFORMIN HYDROCHLORIDE
  6. MELOXICAM. [Concomitant]
     Active Substance: MELOXICAM
  7. LOSARTAN AND HYDROCHLOROTHIAZIDE [Concomitant]
     Active Substance: HYDROCHLOROTHIAZIDE\LOSARTAN POTASSIUM
  8. OZEMBIC [Concomitant]
  9. FLUTICASONE. [Concomitant]
     Active Substance: FLUTICASONE
  10. AMLODIPINE [Concomitant]
     Active Substance: AMLODIPINE BESYLATE
  11. MUPIROCIN. [Concomitant]
     Active Substance: MUPIROCIN
  12. ADVIL [Concomitant]
     Active Substance: IBUPROFEN

REACTIONS (4)
  - Drug ineffective [None]
  - Vaginal infection [None]
  - Sepsis [None]
  - Bacterial infection [None]

NARRATIVE: CASE EVENT DATE: 20190327
